FAERS Safety Report 8313880-4 (Version None)
Quarter: 2012Q2

REPORT INFORMATION
  Report Type: 
  Country: None (occurrence: None)
  Receive Date: 20120426
  Receipt Date: 20120417
  Transmission Date: 20120825
  Serious: Yes (Hospitalization, Other)
  Sender: FDA-Public Use
  Company Number: CO-JNJFOC-20120408387

PATIENT
  Age: 45 Year
  Sex: Female

DRUGS (3)
  1. LYRICA [Concomitant]
     Route: 048
  2. PREDNISOLONE [Concomitant]
     Route: 048
  3. REMICADE [Suspect]
     Indication: RHEUMATOID ARTHRITIS
     Route: 042
     Dates: start: 20090312

REACTIONS (1)
  - OESOPHAGEAL CANDIDIASIS [None]
